FAERS Safety Report 9187983 (Version 1)
Quarter: 2013Q1

REPORT INFORMATION
  Report Type: Spontaneous
  Country: US (occurrence: US)
  Receive Date: 20130325
  Receipt Date: 20130325
  Transmission Date: 20140127
  Serious: No
  Sender: FDA-Public Use
  Company Number: US-MYLANLABS-2012S1022733

PATIENT
  Age: 63 Year
  Sex: Male

DRUGS (5)
  1. FENTANYL TRANSDERMAL SYSTEM [Suspect]
     Indication: NEUROPATHY PERIPHERAL
     Dosage: CHANGED Q72H
     Route: 062
     Dates: start: 2011, end: 201211
  2. OXYCODONE [Concomitant]
     Indication: PAIN
  3. LOSARTAN/HYDROCHLOORTHIAZIDE [Concomitant]
     Indication: BLOOD PRESSURE INCREASED
     Dosage: 100MG/25MG
  4. AMLODIPINE BESYLATE [Concomitant]
     Indication: BLOOD PRESSURE INCREASED
  5. BENADRYL [Concomitant]

REACTIONS (6)
  - Application site infection [Recovered/Resolved]
  - Application site pruritus [Recovered/Resolved]
  - Application site erythema [Recovered/Resolved]
  - Rash generalised [Recovered/Resolved]
  - Pruritus generalised [Recovered/Resolved]
  - Dermatitis contact [Recovered/Resolved]
